FAERS Safety Report 4975485-2 (Version None)
Quarter: 2006Q2

REPORT INFORMATION
  Report Type: 
  Country: None (occurrence: None)
  Receive Date: 20060417
  Receipt Date: 20060417
  Transmission Date: 20061013
  Serious: Yes (Hospitalization)
  Sender: FDA-Public Use
  Company Number: None

PATIENT
  Sex: Male
  Weight: 35 kg

DRUGS (1)
  1. COLISTIMETHATE [Suspect]
     Indication: PNEUMONIA
     Dosage: 150 MG EVERY 12 HRS IVP
     Route: 042
     Dates: start: 20060329

REACTIONS (4)
  - BLOOD CREATININE INCREASED [None]
  - BLOOD UREA INCREASED [None]
  - CONDITION AGGRAVATED [None]
  - PNEUMONIA [None]
